FAERS Safety Report 6345553-1 (Version None)
Quarter: 2009Q3

REPORT INFORMATION
  Report Type: 
  Country: None (occurrence: None)
  Receive Date: 20090909
  Receipt Date: 20090827
  Transmission Date: 20100115
  Serious: Yes (Other)
  Sender: FDA-Public Use
  Company Number: JP-PFIZER INC-2009261918

PATIENT

DRUGS (2)
  1. SOLU-MEDROL [Suspect]
     Route: 042
  2. PREDONINE [Concomitant]

REACTIONS (1)
  - BLOOD AMYLASE INCREASED [None]
